FAERS Safety Report 6618995-4 (Version None)
Quarter: 2010Q1

REPORT INFORMATION
  Report Type: 
  Country: None (occurrence: None)
  Receive Date: 20100308
  Receipt Date: 20100303
  Transmission Date: 20100710
  Serious: Yes (Life-Threatening)
  Sender: FDA-Public Use
  Company Number: PHHY2010MX12799

PATIENT
  Sex: Female

DRUGS (5)
  1. CO-DIOVAN [Suspect]
     Indication: HYPERTENSION
     Dosage: 2 TABLETS (160/25 MG) PER DAY
  2. TRAMADOL HCL [Concomitant]
  3. METOPROLOL TARTRATE [Concomitant]
  4. NIFEDIPINE [Concomitant]
  5. FUROSEMIDE [Concomitant]

REACTIONS (3)
  - FEELING ABNORMAL [None]
  - GAIT DISTURBANCE [None]
  - SPEECH DISORDER [None]
